FAERS Safety Report 25842542 (Version 1)
Quarter: 2025Q3

REPORT INFORMATION
  Report Type: Spontaneous
  Country: US (occurrence: US)
  Receive Date: 20250924
  Receipt Date: 20250924
  Transmission Date: 20251021
  Serious: Yes (Death, Other)
  Sender: BRISTOL-MYERS SQUIBB COMPANY
  Company Number: US-BRISTOL-MYERS SQUIBB COMPANY-2025-131107

PATIENT
  Age: 79 Year
  Sex: Male
  Weight: 65.7 kg

DRUGS (3)
  1. EMPLICITI [Suspect]
     Active Substance: ELOTUZUMAB
     Indication: Plasma cell myeloma
     Dates: start: 20160129, end: 20250624
  2. EMPLICITI [Suspect]
     Active Substance: ELOTUZUMAB
  3. EMPLICITI [Suspect]
     Active Substance: ELOTUZUMAB

REACTIONS (1)
  - Death [Fatal]
